FAERS Safety Report 13342354 (Version 2)
Quarter: 2017Q2

REPORT INFORMATION
  Report Type: Spontaneous
  Country: GB (occurrence: GB)
  Receive Date: 20170316
  Receipt Date: 20170403
  Transmission Date: 20170830
  Serious: Yes (Hospitalization)
  Sender: FDA-Public Use
  Company Number: GB-B.I. PHARMACEUTICALS,INC./RIDGEFIELD-2017-BI-014081

PATIENT
  Age: 7 Decade
  Sex: Female

DRUGS (2)
  1. DOCETAXOL [Suspect]
     Active Substance: DOCETAXEL
     Indication: LUNG NEOPLASM MALIGNANT
     Route: 065
     Dates: start: 20170206
  2. VARGATEF [Suspect]
     Active Substance: NINTEDANIB
     Indication: LUNG NEOPLASM MALIGNANT
     Route: 065
     Dates: start: 20170206

REACTIONS (3)
  - Respiratory symptom [Unknown]
  - Neutropenia [Unknown]
  - Chest discomfort [Unknown]
